FAERS Safety Report 16475837 (Version 2)
Quarter: 2019Q3

REPORT INFORMATION
  Report Type: Spontaneous
  Country: KR (occurrence: KR)
  Receive Date: 20190625
  Receipt Date: 20190702
  Transmission Date: 20191004
  Serious: Yes (Death, Hospitalization, Other)
  Sender: FDA-Public Use
  Company Number: KR-009507513-1906KOR008510

PATIENT
  Sex: Female

DRUGS (20)
  1. SODIUM CHLORIDE. [Concomitant]
     Active Substance: SODIUM CHLORIDE
     Dosage: STRENGTH: 0.9G/100 ML (BAG); QUANTITY: 14; DAYS: 1
     Dates: start: 20190123
  2. PENIRAMIN [Concomitant]
     Dosage: QUANTITY: 4; DAYS: 1
     Dates: start: 20190123
  3. FREAMINE III NOS [Concomitant]
     Active Substance: AMINO ACIDS
     Dosage: QUANTITY: 9, DAYS: 1
     Dates: start: 20190122
  4. ALBUMIN HUMAN [Concomitant]
     Active Substance: ALBUMIN HUMAN
     Dosage: QUANTITY: 1; STRENGTH: 1
     Dates: start: 20190124
  5. ATIVAN [Concomitant]
     Active Substance: LORAZEPAM
     Dosage: QUANTITY: 1; DAYS :1
     Dates: start: 20190128
  6. KEYTRUDA [Suspect]
     Active Substance: PEMBROLIZUMAB
     Indication: CERVIX CARCINOMA
     Dosage: QUANTITY: 2; DAYS :1
     Dates: start: 20190129, end: 20190129
  7. SODIUM CHLORIDE. [Concomitant]
     Active Substance: SODIUM CHLORIDE
     Dosage: STRENGTH: 0.9G/100 ML (BAG); QUANTITY: 34; DAYS: 1
     Dates: start: 20190128
  8. TAGAMET [Concomitant]
     Active Substance: CIMETIDINE
     Dosage: QUANTITY: 2; DAYS: 1
     Dates: start: 20190123
  9. SODIUM CHLORIDE. [Concomitant]
     Active Substance: SODIUM CHLORIDE
     Dosage: STRENGTH: 0.9%, 1000 ML; QUANTITY: 30; DAYS: 1
     Dates: start: 20190122
  10. CORTISOLU [Concomitant]
     Active Substance: HYDROCORTISONE SODIUM SUCCINATE
     Dosage: QUANTITY: 2; DAYS: 1
     Dates: start: 20190123
  11. MORPHINE SULFATE. [Concomitant]
     Active Substance: MORPHINE SULFATE
     Dosage: STRENGTH: 5MG; QUANTITY: 28; DAYS:1
     Dates: start: 20190123
  12. MORPHINE SULFATE. [Concomitant]
     Active Substance: MORPHINE SULFATE
     Dosage: STRENGTH: 30MG; QUANTITY: 9; DAYS:1
     Dates: start: 20190124
  13. MUCOSTEN [Concomitant]
     Dosage: STRENGTH: 300MG/2ML; QUANTITY: 8; DAYS :1
     Dates: start: 20190128
  14. TAMIPOOL [Concomitant]
     Active Substance: VITAMINS
     Dosage: QUANTITY: 9, DAYS: 1
     Dates: start: 20190122
  15. SODIUM CHLORIDE. [Concomitant]
     Active Substance: SODIUM CHLORIDE
     Dosage: STRENGTH: 500 ML (BAG); QUANTITY: 7; DAYS: 1
     Dates: start: 20190123
  16. SODIUM CHLORIDE. [Concomitant]
     Active Substance: SODIUM CHLORIDE
     Dosage: STRENGTH:  0.45%, 500 ML (BAG); QUANTITY: 12; DAYS: 1
     Dates: start: 20190123
  17. ALBUMIN HUMAN [Concomitant]
     Active Substance: ALBUMIN HUMAN
     Dosage: QUANTITY: 2; STRENGTH: 1
     Dates: start: 20190128
  18. LASIX [Concomitant]
     Active Substance: FUROSEMIDE
     Dosage: QUANTITY: 11; DAYS :1
     Dates: start: 20190127
  19. MORPHINE SULFATE. [Concomitant]
     Active Substance: MORPHINE SULFATE
     Dosage: STRENGTH: 1MG; QUANTITY: 7; DAYS:1
     Dates: start: 20190123
  20. CEFTRIAXONE. [Concomitant]
     Active Substance: CEFTRIAXONE
     Dosage: QUANTITY; 7; DAYS: 1
     Dates: start: 20190125

REACTIONS (3)
  - Malignant neoplasm progression [Fatal]
  - Product use in unapproved indication [Unknown]
  - Adverse event [Unknown]

NARRATIVE: CASE EVENT DATE: 2019
